FAERS Safety Report 12175948 (Version 6)
Quarter: 2016Q3

REPORT INFORMATION
  Report Type: Spontaneous
  Country: US (occurrence: US)
  Receive Date: 20160314
  Receipt Date: 20160829
  Transmission Date: 20161109
  Serious: No
  Sender: FDA-Public Use
  Company Number: US-PFIZER INC-2016154382

PATIENT
  Age: 75 Year
  Sex: Male
  Weight: 84.81 kg

DRUGS (6)
  1. ZOCOR [Concomitant]
     Active Substance: SIMVASTATIN
     Dosage: 40 MG, 1X/DAY (AT BEDTIME)
     Route: 048
     Dates: start: 2000
  2. NOVOLOG [Concomitant]
     Active Substance: INSULIN ASPART
     Dosage: 9 IU, 2X/DAY (INJECT 9 UNITS BEFORE BREAKFAST AND DINNER)
     Dates: start: 2009
  3. GLUCOPHAGE [Concomitant]
     Active Substance: METFORMIN HYDROCHLORIDE
     Dosage: 1000 MG, 2X/DAY (WITH MEALS)
     Route: 048
     Dates: start: 2000
  4. LEVEMIR [Concomitant]
     Active Substance: INSULIN DETEMIR
     Dosage: 25 IU, 1X/DAY (INJECT 25 UNITS INTO THE SKIN NIGHTLY)
     Route: 058
     Dates: start: 2009
  5. ALTACE [Concomitant]
     Active Substance: RAMIPRIL
     Dosage: 20 MG, DAILY
     Route: 048
     Dates: start: 2000
  6. SUTENT [Suspect]
     Active Substance: SUNITINIB MALATE
     Indication: RENAL CELL CARCINOMA
     Dosage: 50 MG, 1X/DAY (DAILY X 4 WEEKS/2 WEEKS OFF)
     Route: 048
     Dates: start: 20160211

REACTIONS (10)
  - Malaise [Recovered/Resolved]
  - Eye disorder [Recovering/Resolving]
  - Visual impairment [Unknown]
  - Myalgia [Recovered/Resolved]
  - Pain in extremity [Recovered/Resolved]
  - Myalgia [Unknown]
  - Swelling face [Unknown]
  - Arthralgia [Recovered/Resolved]
  - Abdominal pain [Recovered/Resolved]
  - Peripheral swelling [Recovering/Resolving]

NARRATIVE: CASE EVENT DATE: 20160324
